FAERS Safety Report 25343465 (Version 2)
Quarter: 2025Q2

REPORT INFORMATION
  Report Type: Spontaneous
  Country: US (occurrence: US)
  Receive Date: 20250521
  Receipt Date: 20250530
  Transmission Date: 20250717
  Serious: Yes (Hospitalization, Other)
  Sender: MALLINCKRODT
  Company Number: US-MALLINCKRODT-MNK202502845

PATIENT
  Age: 44 Year
  Sex: Female
  Weight: 170 kg

DRUGS (3)
  1. CORTICOTROPIN [Suspect]
     Active Substance: CORTICOTROPIN
     Indication: Rheumatoid arthritis
     Route: 058
     Dates: start: 20250314, end: 202503
  2. CORTICOTROPIN [Suspect]
     Active Substance: CORTICOTROPIN
     Route: 058
     Dates: start: 202503, end: 2025
  3. CELLCEPT [Concomitant]
     Active Substance: MYCOPHENOLATE MOFETIL

REACTIONS (3)
  - Hospitalisation [Unknown]
  - Rheumatoid arthritis [Unknown]
  - Chronic kidney disease [Unknown]

NARRATIVE: CASE EVENT DATE: 20250101
